FAERS Safety Report 20633168 (Version 1)
Quarter: 2022Q1

REPORT INFORMATION
  Report Type: Spontaneous
  Country: US (occurrence: None)
  Receive Date: 20220324
  Receipt Date: 20220324
  Transmission Date: 20220424
  Serious: No
  Sender: FDA-Public Use
  Company Number: None

PATIENT
  Age: 70 Year
  Sex: Male
  Weight: 65.25 kg

DRUGS (2)
  1. TADALAFIL [Suspect]
     Active Substance: TADALAFIL
     Indication: Benign prostatic hyperplasia
     Dosage: 1 TABLET DAILY ORAL?
     Route: 048
     Dates: start: 20220318, end: 20220321
  2. TADALAFIL [Suspect]
     Active Substance: TADALAFIL
     Indication: Erectile dysfunction

REACTIONS (9)
  - Palpitations [None]
  - Dizziness [None]
  - Eye pain [None]
  - Back pain [None]
  - Arthralgia [None]
  - Arthralgia [None]
  - Pain in extremity [None]
  - Insomnia [None]
  - Dysuria [None]

NARRATIVE: CASE EVENT DATE: 20220322
